FAERS Safety Report 6371674-3 (Version None)
Quarter: 2009Q3

REPORT INFORMATION
  Report Type: 
  Country: None (occurrence: None)
  Receive Date: 20090923
  Receipt Date: 20080808
  Transmission Date: 20100115
  Serious: Yes (Other)
  Sender: FDA-Public Use
  Company Number: US-ASTRAZENECA-2008UW08900

PATIENT
  Age: 15868 Day
  Sex: Male
  Weight: 93 kg

DRUGS (6)
  1. SEROQUEL [Suspect]
     Indication: BIPOLAR I DISORDER
     Dosage: 100-600 MG
     Route: 048
     Dates: start: 20060802, end: 20061211
  2. ZOLOFT [Concomitant]
     Dosage: 50-100 MG
  3. TRAZODONE [Concomitant]
  4. WELLBUTRIN [Concomitant]
  5. ANAFRANIL [Concomitant]
  6. LEXAPRO [Concomitant]

REACTIONS (2)
  - DIABETES MELLITUS [None]
  - DIABETIC KETOACIDOSIS [None]
